FAERS Safety Report 20606348 (Version 1)
Quarter: 2022Q1

REPORT INFORMATION
  Report Type: Spontaneous
  Country: US (occurrence: None)
  Receive Date: 20220316
  Receipt Date: 20220316
  Transmission Date: 20220423
  Serious: Yes (Other)
  Sender: FDA-Public Use
  Company Number: None

PATIENT
  Age: 33 Year
  Sex: Female
  Weight: 53.1 kg

DRUGS (4)
  1. SOTROVIMAB [Suspect]
     Active Substance: SOTROVIMAB
     Indication: COVID-19
     Dosage: OTHER FREQUENCY : X1;?
     Route: 041
     Dates: start: 20220316, end: 20220316
  2. Methotrexate 10mg daily [Concomitant]
     Dates: start: 20220124
  3. Prednisone 10mg daily [Concomitant]
     Dates: start: 20190417
  4. Valacyclovir 1000mg BID [Concomitant]
     Dates: start: 20190417

REACTIONS (3)
  - Blood pressure decreased [None]
  - Infusion related reaction [None]
  - Headache [None]

NARRATIVE: CASE EVENT DATE: 20220316
